FAERS Safety Report 12810472 (Version 5)
Quarter: 2017Q1

REPORT INFORMATION
  Report Type: Report from Study
  Country: US (occurrence: US)
  Receive Date: 20161005
  Receipt Date: 20170111
  Transmission Date: 20170428
  Serious: Yes (Hospitalization, Other)
  Sender: FDA-Public Use
  Company Number: US-MALLINCKRODT-T201604633

PATIENT
  Age: 8 Year
  Sex: Male

DRUGS (2)
  1. REPOSITORY CORTICOTROPIN INJECTION [Suspect]
     Active Substance: CORTICOTROPIN
     Indication: FOCAL SEGMENTAL GLOMERULOSCLEROSIS
     Dosage: 40U/.5ML, 3 TIMES A WEEK
     Route: 058
     Dates: start: 20130501
  2. REPOSITORY CORTICOTROPIN INJECTION [Suspect]
     Active Substance: CORTICOTROPIN
     Indication: NEPHROTIC SYNDROME

REACTIONS (7)
  - Nasopharyngitis [Recovered/Resolved]
  - Hypertension [Recovering/Resolving]
  - Muscle spasms [Not Recovered/Not Resolved]
  - Dehydration [Not Recovered/Not Resolved]
  - Cough [Recovered/Resolved]
  - Pleural effusion [Recovered/Resolved]
  - Atelectasis [Recovered/Resolved]

NARRATIVE: CASE EVENT DATE: 2016
